FAERS Safety Report 19509480 (Version 4)
Quarter: 2022Q1

REPORT INFORMATION
  Report Type: Spontaneous
  Country: JP (occurrence: JP)
  Receive Date: 20210708
  Receipt Date: 20220310
  Transmission Date: 20220423
  Serious: Yes (Life-Threatening, Hospitalization, Disabling, Other)
  Sender: FDA-Public Use
  Company Number: JP-BRISTOL-MYERS SQUIBB COMPANY-BMS-2021-065648

PATIENT
  Age: 63 Year
  Sex: Male
  Weight: 38.5 kg

DRUGS (6)
  1. OPDIVO [Suspect]
     Active Substance: NIVOLUMAB
     Indication: Gastric cancer
     Dosage: 240 MILLIGRAM
     Route: 041
     Dates: start: 20210524, end: 20210524
  2. CEFMETAZOLE SODIUM [Suspect]
     Active Substance: CEFMETAZOLE SODIUM
     Indication: Liver abscess
     Dosage: 1 GRAM, Q8H
     Route: 041
     Dates: start: 20210505, end: 20210529
  3. TEICOPLANIN [Suspect]
     Active Substance: TEICOPLANIN
     Indication: Liver abscess
     Dosage: 400 MILLIGRAM, Q12H
     Route: 041
     Dates: start: 20210505, end: 20210529
  4. MICAFUNGIN SODIUM [Suspect]
     Active Substance: MICAFUNGIN SODIUM
     Indication: Liver abscess
     Dosage: 100 MILLIGRAM, QD
     Route: 041
     Dates: start: 20210505, end: 20210528
  5. FLUCONAZOLE [Suspect]
     Active Substance: FLUCONAZOLE
     Indication: Liver abscess
     Dosage: 400 MILLIGRAM, QD
     Route: 048
     Dates: start: 20210528, end: 20210529
  6. UNSPECIFIED INGREDIENT [Concomitant]
     Active Substance: UNSPECIFIED INGREDIENT
     Indication: Product used for unknown indication
     Route: 065

REACTIONS (2)
  - Stevens-Johnson syndrome [Recovering/Resolving]
  - Malignant neoplasm progression [Unknown]

NARRATIVE: CASE EVENT DATE: 20210529
